FAERS Safety Report 7554124-0 (Version None)
Quarter: 2011Q2

REPORT INFORMATION
  Report Type: 
  Country: None (occurrence: None)
  Receive Date: 20110617
  Receipt Date: 20110616
  Transmission Date: 20111010
  Serious: No
  Sender: FDA-Public Use
  Company Number: US-TEVA-286612USA

PATIENT
  Sex: Female

DRUGS (1)
  1. COPAXONE [Suspect]
     Indication: MULTIPLE SCLEROSIS
     Route: 058

REACTIONS (6)
  - DIZZINESS [None]
  - PAIN [None]
  - MULTIPLE SCLEROSIS [None]
  - FALL [None]
  - APHASIA [None]
  - NERVOUSNESS [None]
